FAERS Safety Report 21705818 (Version 4)
Quarter: 2023Q1

REPORT INFORMATION
  Report Type: Spontaneous
  Country: US (occurrence: US)
  Receive Date: 20221209
  Receipt Date: 20230125
  Transmission Date: 20230418
  Serious: No
  Sender: FDA-Public Use
  Company Number: US-PFIZER INC-202201356187

PATIENT
  Age: 5 Year
  Sex: Female
  Weight: 15.88 kg

DRUGS (1)
  1. GENOTROPIN [Suspect]
     Active Substance: SOMATROPIN
     Indication: Growth hormone deficiency
     Dosage: 0.6 AFTER HAVING JUST GONE UP IN JULY BY 0.1; FROM 0.5 TO 0.6.
     Dates: end: 2022

REACTIONS (5)
  - Device breakage [Unknown]
  - Device information output issue [Unknown]
  - Poor quality device used [Unknown]
  - Drug dose omission by device [Not Recovered/Not Resolved]
  - Product dose omission issue [Unknown]

NARRATIVE: CASE EVENT DATE: 20220101
